FAERS Safety Report 5068512-8 (Version None)
Quarter: 2006Q3

REPORT INFORMATION
  Report Type: 
  Country: None (occurrence: None)
  Receive Date: 20060802
  Receipt Date: 20051101
  Transmission Date: 20061208
  Serious: No
  Sender: FDA-Public Use
  Company Number: US-BRISTOL-MYERS SQUIBB COMPANY-13162920

PATIENT
  Age: 56 Year
  Sex: Female
  Weight: 41 kg

DRUGS (2)
  1. COUMADIN [Suspect]
     Indication: DEEP VEIN THROMBOSIS
     Dosage: 2.5 TO 5.0 MG DAILY
     Dates: start: 20051014
  2. PREDNISONE [Interacting]

REACTIONS (4)
  - DRUG INTERACTION [None]
  - FLUSHING [None]
  - HEADACHE [None]
  - NAUSEA [None]
